FAERS Safety Report 11878419 (Version 13)
Quarter: 2016Q4

REPORT INFORMATION
  Report Type: Report from Study
  Country: CA (occurrence: CA)
  Receive Date: 20151230
  Receipt Date: 20161004
  Transmission Date: 20170206
  Serious: Yes (Hospitalization, Other)
  Sender: FDA-Public Use
  Company Number: PHHY2010CA61978

PATIENT
  Age: 67 Year
  Sex: Male

DRUGS (5)
  1. ASA [Concomitant]
     Active Substance: ASPIRIN
     Indication: PRODUCT USED FOR UNKNOWN INDICATION
     Dosage: 80 MG, UNK
     Route: 048
  2. TIAZAC XC [Concomitant]
     Active Substance: DILTIAZEM HYDROCHLORIDE
     Indication: PRODUCT USED FOR UNKNOWN INDICATION
     Dosage: 240 MG, QD
     Route: 065
  3. SANDOSTATIN LAR DEPOT [Suspect]
     Active Substance: OCTREOTIDE ACETATE
     Indication: ACROMEGALY
     Dosage: 30 MG, QMO (EVERY 4 WEEKS)
     Route: 030
     Dates: start: 20080401, end: 20110616
  4. AMLODIPINE [Concomitant]
     Active Substance: AMLODIPINE BESYLATE
     Indication: PRODUCT USED FOR UNKNOWN INDICATION
     Route: 065
  5. SANDOSTATIN LAR DEPOT [Suspect]
     Active Substance: OCTREOTIDE ACETATE
     Dosage: 20 MG, QMO (EVERY 4 WEEKS)
     Route: 030
     Dates: start: 20110617, end: 20160926

REACTIONS (37)
  - Malignant neoplasm progression [Unknown]
  - Pneumonia viral [Recovered/Resolved]
  - Pleural effusion [Unknown]
  - Acne [Recovered/Resolved]
  - Pruritus [Recovered/Resolved]
  - Headache [Unknown]
  - Dyspnoea at rest [Unknown]
  - Weight increased [Unknown]
  - Blood pressure systolic increased [Unknown]
  - Cataract [Unknown]
  - Malignant neoplasm of pleura [Unknown]
  - Haemoglobin decreased [Unknown]
  - Cough [Not Recovered/Not Resolved]
  - Skin reaction [Recovered/Resolved]
  - Constipation [Recovering/Resolving]
  - Pulmonary thrombosis [Unknown]
  - Arrhythmia [Unknown]
  - Dyspnoea [Unknown]
  - Abdominal pain [Unknown]
  - Hypoaesthesia [Unknown]
  - Groin pain [Unknown]
  - Neck pain [Unknown]
  - Pain [Unknown]
  - Fatigue [Unknown]
  - Nasopharyngitis [Unknown]
  - Abdominal distension [Unknown]
  - Dyspnoea exertional [Unknown]
  - Pyrexia [Unknown]
  - Dehydration [Unknown]
  - Pneumonia [Unknown]
  - Heart rate decreased [Unknown]
  - Body temperature decreased [Unknown]
  - Chest pain [Unknown]
  - Palpitations [Unknown]
  - Neoplasm progression [Unknown]
  - Viral infection [Unknown]
  - Chills [Recovered/Resolved]

NARRATIVE: CASE EVENT DATE: 201011
